FAERS Safety Report 8950738 (Version 1)
Quarter: 2012Q4

REPORT INFORMATION
  Report Type: 
  Country: ES (occurrence: ES)
  Receive Date: 20121207
  Receipt Date: 20121207
  Transmission Date: 20130627
  Serious: Yes (Other)
  Sender: FDA-Public Use
  Company Number: ES-VERTEX PHARMACEUTICALS INC.-2012-025805

PATIENT
  Age: 63 Year
  Sex: Male

DRUGS (7)
  1. INCIVO [Suspect]
     Indication: HEPATITIS C
     Dosage: Dosage Form: Tablet
     Route: 048
     Dates: start: 20120417, end: 2012
  2. RIBAVIRIN [Concomitant]
     Indication: HEPATITIS C
     Dosage: 1000 mg, qd
     Route: 048
     Dates: start: 20120417, end: 20120521
  3. RIBAVIRIN [Concomitant]
     Dosage: 800 mg, qd
     Route: 048
     Dates: start: 20120521
  4. KIVEXA [Concomitant]
     Indication: HIV INFECTION
     Route: 048
  5. PEGASYS [Concomitant]
     Indication: HEPATITIS C
     Dosage: 135 ?g, qw
     Route: 058
     Dates: start: 20120521
  6. PEGASYS [Concomitant]
     Dosage: 180 ?g, qw
     Route: 058
     Dates: start: 20120417, end: 20120521
  7. REYATAZ [Concomitant]
     Indication: HIV INFECTION
     Route: 048

REACTIONS (4)
  - Haemorrhoids [Recovered/Resolved]
  - Haemoglobin decreased [Unknown]
  - Neutropenia [Unknown]
  - Off label use [Unknown]
